FAERS Safety Report 22694577 (Version 4)
Quarter: 2024Q3

REPORT INFORMATION
  Report Type: Report from Study
  Country: US (occurrence: US)
  Receive Date: 20230712
  Receipt Date: 20240702
  Transmission Date: 20241016
  Serious: No
  Sender: NOVARTIS
  Company Number: US-002147023-NVSC2023US152711

PATIENT
  Sex: Male

DRUGS (5)
  1. METHOTREXATE [Suspect]
     Active Substance: METHOTREXATE
     Indication: Psoriasis
     Dosage: UNK
     Route: 065
  2. TRIAMCINOLONE [Suspect]
     Active Substance: TRIAMCINOLONE
     Indication: Psoriasis
     Dosage: UNK, BID (X 2 WEEKS)
     Route: 065
  3. CLOBETASOL [Suspect]
     Active Substance: CLOBETASOL
     Indication: Psoriasis
     Dosage: UNK
     Route: 065
  4. HALOBETASOL PROPIONATE [Suspect]
     Active Substance: HALOBETASOL PROPIONATE
     Indication: Psoriasis
     Dosage: UNK
     Route: 065
  5. HALOBETASOL [Suspect]
     Active Substance: HALOBETASOL
     Indication: Product used for unknown indication
     Dosage: UNK
     Route: 065

REACTIONS (4)
  - Full blood count abnormal [Unknown]
  - Eosinophil count increased [Unknown]
  - Psoriasis [Unknown]
  - Drug ineffective [Unknown]
